FAERS Safety Report 7783579-1 (Version None)
Quarter: 2011Q3

REPORT INFORMATION
  Report Type: 
  Country: None (occurrence: None)
  Receive Date: 20110928
  Receipt Date: 20110722
  Transmission Date: 20111222
  Serious: Yes (Death)
  Sender: FDA-Public Use
  Company Number: US-TYCO HEALTHCARE/MALLINCKRODT-T201101445

PATIENT
  Age: 38 Year
  Sex: Female

DRUGS (1)
  1. HYDROMORPHONE HCL [Suspect]

REACTIONS (3)
  - DRUG DIVERSION [None]
  - INTENTIONAL DRUG MISUSE [None]
  - INCORRECT ROUTE OF DRUG ADMINISTRATION [None]
